FAERS Safety Report 4686101-1 (Version None)
Quarter: 2005Q2

REPORT INFORMATION
  Report Type: 
  Country: None (occurrence: None)
  Receive Date: 20050606
  Receipt Date: 20050524
  Transmission Date: 20051028
  Serious: Yes (Death, Hospitalization)
  Sender: FDA-Public Use
  Company Number: HQWYE985326MAY05

PATIENT
  Age: 59 Year
  Sex: Male

DRUGS (11)
  1. CORDARONE [Suspect]
     Dosage: 200 MG 1X PER 1 DAY ORAL
     Route: 048
     Dates: start: 20030315, end: 20050225
  2. PRAVASTATIN [Concomitant]
  3. OMEPRAZOLE [Concomitant]
  4. KARDEGIC (ACETYLSALICYLATE LYSINE) [Concomitant]
  5. PLAVIX [Concomitant]
  6. RAMIPRIL [Concomitant]
  7. BISOPROLOL FUMARATE [Concomitant]
  8. LASIX [Concomitant]
  9. ALDACTONE [Concomitant]
  10. DIAMICRON (GLICLAZIDE) [Concomitant]
  11. XANAX [Concomitant]

REACTIONS (7)
  - ARRHYTHMIA [None]
  - ATRIOVENTRICULAR BLOCK COMPLETE [None]
  - CARDIAC ARREST [None]
  - CARDIOGENIC SHOCK [None]
  - HYPERTHYROIDISM [None]
  - MYOCARDIAL INFARCTION [None]
  - VENTRICULAR FIBRILLATION [None]
